FAERS Safety Report 10557128 (Version 4)
Quarter: 2014Q4

REPORT INFORMATION
  Report Type: Spontaneous
  Country: US (occurrence: US)
  Receive Date: 20141031
  Receipt Date: 20141205
  Transmission Date: 20150529
  Serious: Yes (Death, Other)
  Sender: FDA-Public Use
  Company Number: US-SANOFI-AVENTIS-2011SA033680

PATIENT
  Age: 86 Year
  Sex: Female

DRUGS (10)
  1. PLAVIX [Concomitant]
     Active Substance: CLOPIDOGREL BISULFATE
  2. METOPROLOL [Concomitant]
     Active Substance: METOPROLOL
  3. LOSARTAN [Concomitant]
     Active Substance: LOSARTAN
  4. MULTAQ [Suspect]
     Active Substance: DRONEDARONE
     Indication: ATRIAL FIBRILLATION
     Route: 048
     Dates: start: 201102, end: 20110429
  5. FUROSEMIDE. [Suspect]
     Active Substance: FUROSEMIDE
     Route: 065
  6. MULTAQ [Suspect]
     Active Substance: DRONEDARONE
     Indication: ATRIAL FIBRILLATION
     Dosage: DOSE: TOOK 1\2 TABLET
     Route: 048
     Dates: start: 20110506, end: 20110506
  7. FUROSEMIDE. [Suspect]
     Active Substance: FUROSEMIDE
     Route: 065
  8. ALLOPURINOL. [Concomitant]
     Active Substance: ALLOPURINOL
  9. ZOCOR [Concomitant]
     Active Substance: SIMVASTATIN
  10. MULTAQ [Suspect]
     Active Substance: DRONEDARONE
     Indication: ATRIAL FIBRILLATION
     Route: 048
     Dates: start: 20110429, end: 20110506

REACTIONS (22)
  - Renal failure [Unknown]
  - Joint swelling [Not Recovered/Not Resolved]
  - Peripheral swelling [Not Recovered/Not Resolved]
  - Lethargy [Not Recovered/Not Resolved]
  - Eating disorder [Not Recovered/Not Resolved]
  - Vomiting [Unknown]
  - Malaise [Not Recovered/Not Resolved]
  - Diarrhoea [Not Recovered/Not Resolved]
  - Wrong technique in drug usage process [Unknown]
  - Myalgia [Not Recovered/Not Resolved]
  - Hypotension [Unknown]
  - Pulmonary oedema [Fatal]
  - Asthenia [Not Recovered/Not Resolved]
  - Abdominal discomfort [Not Recovered/Not Resolved]
  - Nausea [Unknown]
  - Fatigue [Not Recovered/Not Resolved]
  - Pulmonary mass [Fatal]
  - Dysstasia [Not Recovered/Not Resolved]
  - Hepatic failure [Unknown]
  - Alopecia [Not Recovered/Not Resolved]
  - Renal impairment [Recovering/Resolving]
  - Abdominal distension [Not Recovered/Not Resolved]

NARRATIVE: CASE EVENT DATE: 20110424
